FAERS Safety Report 7252151-4 (Version None)
Quarter: 2011Q1

REPORT INFORMATION
  Report Type: 
  Country: None (occurrence: None)
  Receive Date: 20110128
  Receipt Date: 20100329
  Transmission Date: 20110831
  Serious: No
  Sender: FDA-Public Use
  Company Number: US-ABBOTT-10P-163-0636205-00

PATIENT
  Sex: Female
  Weight: 75.364 kg

DRUGS (8)
  1. LANTUS [Concomitant]
     Indication: DIABETES MELLITUS
  2. LIPITOR [Concomitant]
     Indication: PRODUCT USED FOR UNKNOWN INDICATION
  3. PRAMIPEXOLE [Concomitant]
     Indication: RESTLESS LEGS SYNDROME
     Dosage: 1-2 AS REQUIRED
  4. PROPRANOLOL [Concomitant]
     Indication: BLOOD PRESSURE
  5. ASCOL [Concomitant]
     Indication: PRODUCT USED FOR UNKNOWN INDICATION
  6. HUMIRA [Suspect]
     Indication: PSORIASIS
     Route: 058
     Dates: start: 20100104
  7. TRICOR [Concomitant]
     Indication: PRODUCT USED FOR UNKNOWN INDICATION
  8. AMARIL GENERIC [Concomitant]
     Indication: PRODUCT USED FOR UNKNOWN INDICATION

REACTIONS (4)
  - INJECTION SITE RASH [None]
  - INJECTION SITE PAIN [None]
  - INJECTION SITE PAPULE [None]
  - INJECTION SITE PRURITUS [None]
